FAERS Safety Report 16876222 (Version 1)
Quarter: 2019Q4

REPORT INFORMATION
  Report Type: Spontaneous
  Country: US (occurrence: US)
  Receive Date: 20190807
  Receipt Date: 20190807
  Transmission Date: 20200122
  Serious: Yes (Other)
  Sender: FDA-Public Use
  Company Number: None

PATIENT
  Sex: Female
  Weight: 69.4 kg

DRUGS (1)
  1. LORAZEPAM 1MG [Suspect]
     Active Substance: LORAZEPAM
     Indication: ANXIETY
     Dates: start: 201906

REACTIONS (6)
  - Disturbance in attention [None]
  - Insomnia [None]
  - Tremor [None]
  - Nervousness [None]
  - Drug ineffective [None]
  - Feeling abnormal [None]
